FAERS Safety Report 22781644 (Version 2)
Quarter: 2023Q4

REPORT INFORMATION
  Report Type: Spontaneous
  Country: US (occurrence: US)
  Receive Date: 20230803
  Receipt Date: 20231005
  Transmission Date: 20240110
  Serious: Yes (Other)
  Sender: FDA-Public Use
  Company Number: US-PFIZER INC-PV202300132307

PATIENT
  Sex: Male

DRUGS (1)
  1. XYNTHA [Suspect]
     Active Substance: ANTIHEMOPHILIC FACTOR, HUMAN RECOMBINANT RESIDUES 743-1636 DELETED
     Dosage: 3 TIMES A WEEK
     Route: 042
     Dates: start: 2013, end: 2016

REACTIONS (4)
  - Therapeutic product effect decreased [Unknown]
  - Haemarthrosis [Unknown]
  - Haemorrhage [Unknown]
  - Contusion [Unknown]
